FAERS Safety Report 7998538-3 (Version None)
Quarter: 2011Q4

REPORT INFORMATION
  Report Type: 
  Country: None (occurrence: None)
  Receive Date: 20111221
  Receipt Date: 20111216
  Transmission Date: 20120403
  Serious: Yes (Hospitalization)
  Sender: FDA-Public Use
  Company Number: US-GILEAD-2011-0048310

PATIENT
  Age: 59 Year
  Sex: Female

DRUGS (2)
  1. LETAIRIS [Suspect]
     Indication: PRODUCT USED FOR UNKNOWN INDICATION
     Dosage: 5 MG, UNK
     Route: 048
     Dates: start: 20111102
  2. ADCIRCA [Concomitant]

REACTIONS (3)
  - SYNCOPE [None]
  - HYPOTENSION [None]
  - LABILE BLOOD PRESSURE [None]
